FAERS Safety Report 4856371-5 (Version None)
Quarter: 2005Q4

REPORT INFORMATION
  Report Type: 
  Country: None (occurrence: None)
  Receive Date: 20051219
  Receipt Date: 20050211
  Transmission Date: 20060501
  Serious: No
  Sender: FDA-Public Use
  Company Number: US-GLAXOSMITHKLINE-A0545207A

PATIENT
  Age: 51 Year
  Sex: Female

DRUGS (1)
  1. AMERICAN FARE NTS, 14MG STEP 2 [Suspect]
     Dates: start: 20050209, end: 20050210

REACTIONS (5)
  - BLOOD PRESSURE INCREASED [None]
  - DRY MOUTH [None]
  - HEART RATE INCREASED [None]
  - OVERDOSE [None]
  - TENSION [None]
